FAERS Safety Report 6260730-6 (Version None)
Quarter: 2009Q3

REPORT INFORMATION
  Report Type: 
  Country: None (occurrence: None)
  Receive Date: 20090708
  Receipt Date: 20090603
  Transmission Date: 20100115
  Serious: Yes (Other)
  Sender: FDA-Public Use
  Company Number: US-GENENTECH-283095

PATIENT
  Sex: Female
  Weight: 85.261 kg

DRUGS (7)
  1. XOLAIR [Suspect]
     Indication: ASTHMA
     Dosage: 150 MG, 1/MONTH
     Route: 058
     Dates: start: 20071214
  2. TYLENOL W/ CODEINE [Concomitant]
     Indication: DRUG USE FOR UNKNOWN INDICATION
     Dosage: UNK
     Route: 048
  3. PROVENTIL-HFA [Concomitant]
     Indication: ASTHMA
     Dosage: UNK
  4. ALBUTEROL [Concomitant]
     Indication: ASTHMA
     Dosage: UNK
  5. NASONEX [Concomitant]
     Indication: HYPERSENSITIVITY
     Dosage: 50 A?G, UNK
     Route: 045
  6. ASTELIN [Concomitant]
     Indication: HYPERSENSITIVITY
     Dosage: 137 A?G, UNK
     Route: 045
  7. ADVAIR HFA [Concomitant]
     Indication: ASTHMA
     Dosage: UNK

REACTIONS (1)
  - ANAPHYLACTIC REACTION [None]
